FAERS Safety Report 24772565 (Version 2)
Quarter: 2025Q1

REPORT INFORMATION
  Report Type: Report from Study
  Country: JP (occurrence: JP)
  Receive Date: 20241224
  Receipt Date: 20250206
  Transmission Date: 20250409
  Serious: Yes (Hospitalization, Other)
  Sender: ASTELLAS
  Company Number: JP-ASTELLAS-2024-AER-011349

PATIENT
  Age: 65 Year
  Sex: Female
  Weight: 36 kg

DRUGS (16)
  1. ZOLBETUXIMAB [Suspect]
     Active Substance: ZOLBETUXIMAB
     Indication: Gastric cancer
     Route: 042
     Dates: start: 20240930, end: 20240930
  2. ZOLBETUXIMAB [Suspect]
     Active Substance: ZOLBETUXIMAB
     Route: 042
     Dates: start: 20241015, end: 20241015
  3. ZOLBETUXIMAB [Suspect]
     Active Substance: ZOLBETUXIMAB
     Route: 042
     Dates: start: 20241101, end: 20241101
  4. OLANZAPINE [Suspect]
     Active Substance: OLANZAPINE
     Indication: Prophylaxis of nausea and vomiting
     Route: 048
     Dates: start: 20240929, end: 20240930
  5. FLUOROURACIL [Suspect]
     Active Substance: FLUOROURACIL
     Indication: Product used for unknown indication
     Route: 065
  6. FLUOROURACIL [Suspect]
     Active Substance: FLUOROURACIL
     Route: 065
     Dates: start: 20241101, end: 20241101
  7. FLUOROURACIL [Suspect]
     Active Substance: FLUOROURACIL
     Route: 065
     Dates: start: 20241101, end: 20241101
  8. OXALIPLATIN [Suspect]
     Active Substance: OXALIPLATIN
     Indication: Product used for unknown indication
     Route: 065
  9. OXALIPLATIN [Suspect]
     Active Substance: OXALIPLATIN
     Route: 065
     Dates: start: 20241101, end: 20241101
  10. LEVOLEUCOVORIN CALCIUM [Suspect]
     Active Substance: LEVOLEUCOVORIN CALCIUM
     Indication: Product used for unknown indication
     Route: 065
  11. PRIMPERAN [Concomitant]
     Active Substance: METOCLOPRAMIDE HYDROCHLORIDE
     Indication: Vomiting
     Route: 065
     Dates: start: 20240930, end: 20240930
  12. DAYVIGO [Concomitant]
     Active Substance: LEMBOREXANT
     Indication: Sleep disorder
     Route: 048
  13. BROTIZOLAM [Concomitant]
     Active Substance: BROTIZOLAM
     Indication: Sleep disorder
     Route: 048
  14. FENTANYL [Concomitant]
     Active Substance: FENTANYL
     Indication: Pain
     Route: 065
  15. Filgrastim BS Injection [Concomitant]
     Indication: Product used for unknown indication
     Route: 065
     Dates: start: 20241111, end: 20241112
  16. PEGFILGRASTIM [Concomitant]
     Active Substance: PEGFILGRASTIM
     Indication: Neutrophil count decreased
     Route: 065
     Dates: start: 202411, end: 202411

REACTIONS (18)
  - Platelet count decreased [Recovered/Resolved with Sequelae]
  - Neutrophil count decreased [Recovered/Resolved]
  - Pneumonia aspiration [Recovered/Resolved]
  - Somnolence [Not Recovered/Not Resolved]
  - Ascites [Unknown]
  - Vomiting [Recovering/Resolving]
  - Decreased appetite [Not Recovered/Not Resolved]
  - Pyrexia [Recovered/Resolved]
  - Incontinence [Recovered/Resolved]
  - Nausea [Unknown]
  - Malaise [Unknown]
  - Muscular weakness [Not Recovered/Not Resolved]
  - Gait disturbance [Not Recovered/Not Resolved]
  - Nutritional condition abnormal [Unknown]
  - Hypoalbuminaemia [Unknown]
  - Aspartate aminotransferase increased [Unknown]
  - Alanine aminotransferase increased [Unknown]
  - White blood cell count decreased [Unknown]

NARRATIVE: CASE EVENT DATE: 20240930
